FAERS Safety Report 25465336 (Version 1)
Quarter: 2025Q2

REPORT INFORMATION
  Report Type: Spontaneous
  Country: US (occurrence: US)
  Receive Date: 20250622
  Receipt Date: 20250622
  Transmission Date: 20250716
  Serious: No
  Sender: BAUSCH AND LOMB
  Company Number: US-BAUSCH-BL-2021-029809

PATIENT
  Sex: Female
  Weight: 54.33 kg

DRUGS (1)
  1. LACRISERT [Suspect]
     Active Substance: HYDROXYPROPYL CELLULOSE
     Indication: Sjogren^s syndrome
     Dosage: INTIALLY PATIENT USED TO ADMINISTER 1 INSERT FOR 24 HOURS, NOW USING IT ONCE IN 7 DAYS
     Route: 047

REACTIONS (3)
  - Ill-defined disorder [Unknown]
  - Intentional product use issue [Unknown]
  - Product availability issue [Unknown]
